FAERS Safety Report 10614420 (Version 1)
Quarter: 2014Q4

REPORT INFORMATION
  Report Type: Spontaneous
  Country: US (occurrence: US)
  Receive Date: 20141129
  Receipt Date: 20141129
  Transmission Date: 20150529
  Serious: Yes (Other)
  Sender: FDA-Public Use
  Company Number: US-AUROBINDO-AUR-APL-2014-12567

PATIENT
  Age: 42 Year
  Sex: Female

DRUGS (1)
  1. GABAPENTIN CAPSULES 400 MG [Suspect]
     Active Substance: GABAPENTIN
     Indication: NEUROPATHY PERIPHERAL
     Dosage: 400 MG, UNK
     Route: 048

REACTIONS (4)
  - Cough [Recovering/Resolving]
  - Chest discomfort [Recovering/Resolving]
  - Oesophagitis [Recovering/Resolving]
  - Wheezing [Recovering/Resolving]
